FAERS Safety Report 11330814 (Version 1)
Quarter: 2015Q3

REPORT INFORMATION
  Report Type: Spontaneous
  Country: US (occurrence: US)
  Receive Date: 20150803
  Receipt Date: 20150803
  Transmission Date: 20151125
  Serious: No
  Sender: FDA-Public Use
  Company Number: US-GLAXOSMITHKLINE-US2015GSK109902

PATIENT
  Sex: Male

DRUGS (12)
  1. ATORVASTATIN [Concomitant]
     Active Substance: ATORVASTATIN
  2. MORPHINE [Concomitant]
     Active Substance: MORPHINE
  3. PANTOPRAZOLE [Concomitant]
     Active Substance: PANTOPRAZOLE SODIUM
  4. ENOXAPARIN [Concomitant]
     Active Substance: ENOXAPARIN
  5. LORAZEPAM. [Concomitant]
     Active Substance: LORAZEPAM
  6. MELATONIN [Concomitant]
     Active Substance: MELATONIN
  7. NEXIUM [Concomitant]
     Active Substance: ESOMEPRAZOLE MAGNESIUM
  8. AMOXICILLIN. [Suspect]
     Active Substance: AMOXICILLIN
     Indication: PRODUCT USED FOR UNKNOWN INDICATION
  9. FENTANYL. [Concomitant]
     Active Substance: FENTANYL
  10. MEKINIST [Suspect]
     Active Substance: TRAMETINIB DIMETHYL SULFOXIDE
     Indication: COLON CANCER
     Dosage: 2 MG, QD
     Route: 048
     Dates: start: 20150518
  11. LUNESTA [Concomitant]
     Active Substance: ESZOPICLONE
  12. LEVOTHYROXINE. [Concomitant]
     Active Substance: LEVOTHYROXINE

REACTIONS (2)
  - Drug hypersensitivity [Unknown]
  - Adverse drug reaction [Unknown]
